FAERS Safety Report 9079859 (Version 1)
Quarter: 2013Q1

REPORT INFORMATION
  Report Type: Spontaneous
  Country: IT (occurrence: IT)
  Receive Date: 20130130
  Receipt Date: 20130130
  Transmission Date: 20140127
  Serious: Yes (Hospitalization)
  Sender: FDA-Public Use
  Company Number: IT-TEVA-382108ISR

PATIENT
  Age: 82 Year
  Sex: Female

DRUGS (5)
  1. CITALOPRAM [Suspect]
     Dosage: 7 GTT DAILY;
     Route: 048
     Dates: start: 20120101, end: 20120904
  2. LANOXIN [Concomitant]
  3. COUMADIN [Concomitant]
  4. KOLIBRI [Concomitant]
     Dosage: TRAMADOL 37.5 MG ,PARACETAMOL 325 MG
  5. KOLIBRI [Concomitant]

REACTIONS (4)
  - Confusional state [Recovering/Resolving]
  - Anxiety [Recovering/Resolving]
  - Agitation [Recovering/Resolving]
  - Fear [Recovering/Resolving]
